FAERS Safety Report 21364014 (Version 1)
Quarter: 2022Q3

REPORT INFORMATION
  Report Type: Spontaneous
  Country: CN (occurrence: CN)
  Receive Date: 20220922
  Receipt Date: 20220922
  Transmission Date: 20221027
  Serious: Yes (Other)
  Sender: FDA-Public Use
  Company Number: CN-PFIZER INC-PV202200067437

PATIENT
  Age: 51 Year
  Sex: Female
  Weight: 60 kg

DRUGS (1)
  1. CELECOXIB [Suspect]
     Active Substance: CELECOXIB
     Indication: Back pain
     Dosage: 1 DF, 2X/DAY
     Route: 048
     Dates: start: 20220822, end: 20220901

REACTIONS (4)
  - Rash erythematous [Recovering/Resolving]
  - Lip swelling [Recovering/Resolving]
  - Pruritus [Recovered/Resolved]
  - Mouth swelling [Recovered/Resolved]

NARRATIVE: CASE EVENT DATE: 20220831
